FAERS Safety Report 4952740-3 (Version None)
Quarter: 2006Q1

REPORT INFORMATION
  Report Type: 
  Country: None (occurrence: None)
  Receive Date: 20060324
  Receipt Date: 20060320
  Transmission Date: 20060701
  Serious: Yes (Other)
  Sender: FDA-Public Use
  Company Number: JP-BRACCO-BRO-009897

PATIENT
  Age: 57 Year
  Sex: Female

DRUGS (1)
  1. IOPAMIRON [Suspect]
     Route: 042

REACTIONS (2)
  - ANAPHYLACTOID SHOCK [None]
  - LIVER DISORDER [None]
